FAERS Safety Report 8066829-6 (Version None)
Quarter: 2011Q4

REPORT INFORMATION
  Report Type: 
  Country: None (occurrence: None)
  Receive Date: 20111221
  Receipt Date: 20110405
  Transmission Date: 20120403
  Serious: Yes (Other)
  Sender: FDA-Public Use
  Company Number: PHHY2011US10204

PATIENT
  Age: 68 Year
  Sex: Male
  Weight: 95.2 kg

DRUGS (2)
  1. EXJADE [Suspect]
     Indication: HEREDITARY HAEMOLYTIC ANAEMIA
     Dosage: 2000 MG, ORAL
     Route: 048
     Dates: start: 20090918, end: 20101104
  2. EXJADE [Suspect]
     Indication: HEREDITARY HAEMOLYTIC ANAEMIA
     Dosage: 2000 MG, ORAL
     Route: 048
     Dates: start: 20090225

REACTIONS (2)
  - BLOOD CREATININE INCREASED [None]
  - BLOOD UREA INCREASED [None]
